FAERS Safety Report 21655146 (Version 2)
Quarter: 2023Q1

REPORT INFORMATION
  Report Type: Report from Study
  Country: US (occurrence: US)
  Receive Date: 20221129
  Receipt Date: 20230130
  Transmission Date: 20230417
  Serious: No
  Sender: FDA-Public Use
  Company Number: US-AMGEN-USASL2022201410

PATIENT
  Age: 79 Year
  Sex: Female

DRUGS (3)
  1. NEULASTA [Suspect]
     Active Substance: PEGFILGRASTIM
     Indication: Product used for unknown indication
     Dosage: UNK, Q2WK
     Route: 065
     Dates: start: 20221005
  2. NEULASTA [Suspect]
     Active Substance: PEGFILGRASTIM
     Dosage: UNK, Q2WK
     Route: 065
     Dates: start: 20221005
  3. DEXAMETHASONE [Suspect]
     Active Substance: DEXAMETHASONE
     Dosage: UNK, UNK, AFTER CHEMO
     Route: 065

REACTIONS (2)
  - Fatigue [Unknown]
  - Device issue [Unknown]

NARRATIVE: CASE EVENT DATE: 20221117
